FAERS Safety Report 18655827 (Version 1)
Quarter: 2020Q4

REPORT INFORMATION
  Report Type: Spontaneous
  Country: CN (occurrence: CN)
  Receive Date: 20201223
  Receipt Date: 20201223
  Transmission Date: 20210114
  Serious: Yes (Life-Threatening, Other)
  Sender: FDA-Public Use
  Company Number: CN-AMGEN-CHNSP2020205350

PATIENT

DRUGS (2)
  1. PROLIA [Suspect]
     Active Substance: DENOSUMAB
     Indication: PRODUCT USED FOR UNKNOWN INDICATION
     Dosage: 60 MILLIGRAM
     Route: 058
  2. CALCIUM [Concomitant]
     Active Substance: CALCIUM
     Dosage: UNK

REACTIONS (15)
  - White blood cell count decreased [Unknown]
  - Drug specific antibody present [Recovered/Resolved]
  - Neutrophil count decreased [Unknown]
  - Urinary tract infection [Unknown]
  - Aspartate aminotransferase increased [Unknown]
  - Blood urine present [Unknown]
  - Blood phosphorus decreased [Unknown]
  - Alanine aminotransferase increased [Unknown]
  - Oropharyngeal pain [Unknown]
  - Blood calcium decreased [Unknown]
  - Lipase increased [Unknown]
  - Neutrophil count increased [Unknown]
  - White blood cell count increased [Unknown]
  - Myalgia [Unknown]
  - Upper respiratory tract infection [Unknown]
